FAERS Safety Report 7277811-0 (Version None)
Quarter: 2011Q1

REPORT INFORMATION
  Report Type: 
  Country: None (occurrence: None)
  Receive Date: 20110207
  Receipt Date: 20110129
  Transmission Date: 20110831
  Serious: Yes (Other)
  Sender: FDA-Public Use
  Company Number: AR-JNJFOC-20110201170

PATIENT
  Age: 26 Year
  Sex: Female

DRUGS (1)
  1. RISPERDAL [Suspect]
     Indication: ILL-DEFINED DISORDER
     Dosage: 3MG TABLET X 20
     Route: 002

REACTIONS (1)
  - HYPONATRAEMIA [None]
